FAERS Safety Report 4744680-X (Version None)
Quarter: 2005Q3

REPORT INFORMATION
  Report Type: 
  Country: None (occurrence: None)
  Receive Date: 20050815
  Receipt Date: 20050804
  Transmission Date: 20060218
  Serious: Yes (Other)
  Sender: FDA-Public Use
  Company Number: US-JNJFOC-20050607572

PATIENT
  Sex: Female
  Weight: 149.69 kg

DRUGS (10)
  1. REMICADE [Suspect]
     Indication: CROHN'S DISEASE
     Route: 042
  2. PREDNISONE [Concomitant]
  3. 6MP [Concomitant]
  4. PRILOSEC OTC [Concomitant]
  5. VITRON C [Concomitant]
  6. PENTASA [Concomitant]
  7. ATENOLOL [Concomitant]
  8. DEPO-PROVERA [Concomitant]
  9. LEVSIN SL [Concomitant]
  10. LEVBID [Concomitant]

REACTIONS (2)
  - OEDEMA PERIPHERAL [None]
  - PAPILLOEDEMA [None]
